FAERS Safety Report 6941420-0 (Version None)
Quarter: 2010Q3

REPORT INFORMATION
  Report Type: 
  Country: None (occurrence: None)
  Receive Date: 20100825
  Receipt Date: 20100811
  Transmission Date: 20110219
  Serious: Yes (Hospitalization)
  Sender: FDA-Public Use
  Company Number: BE-MYLANLABS-2010S1014590

PATIENT
  Age: 13 Year
  Sex: Male
  Weight: 61 kg

DRUGS (13)
  1. OMEPRAZOLE [Suspect]
     Route: 048
     Dates: start: 20080620
  2. CYCLOPHOSPHAMIDE [Suspect]
     Indication: ACUTE LYMPHOCYTIC LEUKAEMIA
     Dosage: (ON DAY 1)
     Route: 042
     Dates: start: 20080714
  3. CYTARABINE [Suspect]
     Indication: ACUTE LYMPHOCYTIC LEUKAEMIA
     Dosage: ON DAYS 3-6 AND 10-13
     Route: 042
  4. CYTARABINE [Suspect]
     Dosage: ON DAY 3
     Route: 037
  5. METHOTREXATE [Suspect]
     Indication: ACUTE LYMPHOCYTIC LEUKAEMIA
     Dosage: ON DAY 3
     Route: 037
  6. BACTRIM [Suspect]
     Route: 048
  7. DEXAMETHASONE [Concomitant]
     Indication: ACUTE LYMPHOCYTIC LEUKAEMIA
     Dosage: 6 MG/M2 DAILY
     Route: 048
     Dates: start: 20080602
  8. VINCRISTINE [Concomitant]
     Indication: ACUTE LYMPHOCYTIC LEUKAEMIA
     Dosage: (ON DAYS 8, 15, 22, 29) PROTOCOL STARTED ON 2 JUNE 2008
     Route: 065
     Dates: end: 20080701
  9. DOXORUBICIN HCL [Concomitant]
     Indication: ACUTE LYMPHOCYTIC LEUKAEMIA
     Dosage: ON DAYS 8, 15, 22, 29
     Route: 065
     Dates: end: 20080701
  10. ERWINASE [Concomitant]
     Indication: ACUTE LYMPHOCYTIC LEUKAEMIA
     Dosage: 20 000 U/M2; ON DAYS 8, 10, 13, 15, 17, 19
     Route: 065
     Dates: end: 20080620
  11. THIOGUANINE [Concomitant]
     Indication: ACUTE LYMPHOCYTIC LEUKAEMIA
     Dosage: 60 MG/M2/DAY; DAYS 1-14
     Route: 048
     Dates: start: 20080714
  12. METHYLPREDNISOLONE [Concomitant]
     Indication: ACUTE LYMPHOCYTIC LEUKAEMIA
     Dosage: ON DAY 3
     Route: 037
  13. ONDANSETRON [Concomitant]
     Dosage: MAXIMUM 8MG
     Route: 065

REACTIONS (3)
  - DYSARTHRIA [None]
  - HEMIPARESIS [None]
  - VIITH NERVE PARALYSIS [None]
